FAERS Safety Report 21689411 (Version 1)
Quarter: 2022Q4

REPORT INFORMATION
  Report Type: Spontaneous
  Country: US (occurrence: US)
  Receive Date: 20221206
  Receipt Date: 20221206
  Transmission Date: 20230113
  Serious: No
  Sender: FDA-Public Use
  Company Number: US-ORGANON-O2211USA001065

PATIENT
  Sex: Female
  Weight: 54.422 kg

DRUGS (8)
  1. COZAAR [Suspect]
     Active Substance: LOSARTAN POTASSIUM
     Indication: Blood pressure abnormal
     Dosage: UNK
     Dates: end: 2022
  2. ORENITRAM [Suspect]
     Active Substance: TREPROSTINIL
     Indication: Pulmonary arterial hypertension
     Dosage: UNK
     Route: 048
     Dates: start: 20220113, end: 2022
  3. ORENITRAM [Suspect]
     Active Substance: TREPROSTINIL
     Dosage: 3.25 MILLIGRAM, BID; STRENGTH:0.25 MILLIGRAM (AS REPORTED)
     Route: 048
     Dates: start: 2022, end: 202209
  4. ORENITRAM [Suspect]
     Active Substance: TREPROSTINIL
     Dosage: 3.125 MILLIGRAM, BID; STRENGTH: 1 MILLIGRAM (AS REPORTED)
     Route: 048
     Dates: start: 202209, end: 2022
  5. ORENITRAM [Suspect]
     Active Substance: TREPROSTINIL
     Dosage: (STRENGTH ALSO REPORTED AS 2.5 MILLIGRAM AS ADDITIONAL (DISCREPANT)
     Route: 048
     Dates: start: 2022
  6. ORENITRAM [Suspect]
     Active Substance: TREPROSTINIL
     Dosage: STRENGTH: 0.125 MILLIGRAM (AS REPORTED)
     Route: 048
     Dates: start: 2022
  7. OPSUMIT [Concomitant]
     Active Substance: MACITENTAN
     Dosage: UNK
  8. TADALAFIL [Concomitant]
     Active Substance: TADALAFIL
     Dosage: UNK

REACTIONS (3)
  - Hypotension [Recovered/Resolved]
  - Asthenia [Recovered/Resolved]
  - Diarrhoea [Not Recovered/Not Resolved]

NARRATIVE: CASE EVENT DATE: 20220101
